FAERS Safety Report 4375738-5 (Version None)
Quarter: 2004Q2

REPORT INFORMATION
  Report Type: 
  Country: None (occurrence: None)
  Receive Date: 20040607
  Receipt Date: 20040525
  Transmission Date: 20050107
  Serious: Yes (Disabling)
  Sender: FDA-Public Use
  Company Number: GBWYE785427MAY04

PATIENT
  Sex: Female

DRUGS (1)
  1. PREMIQUE (CONJUGATED ESTROGENS/MEDROXYPROGESTERONE ACETATE, TABLET, UN [Suspect]
     Indication: OSTEOPOROSIS
     Dosage: 1 DAILY ORAL
     Route: 048
     Dates: start: 19980101, end: 20031101

REACTIONS (3)
  - DRUG WITHDRAWAL SYNDROME [None]
  - FIBROMYALGIA [None]
  - POLYARTHRITIS [None]
